FAERS Safety Report 8362153-2 (Version None)
Quarter: 2012Q2

REPORT INFORMATION
  Report Type: 
  Country: None (occurrence: None)
  Receive Date: 20120515
  Receipt Date: 20120504
  Transmission Date: 20120825
  Serious: Yes (Other)
  Sender: FDA-Public Use
  Company Number: US-BAXTER-2012BAX004889

PATIENT
  Sex: Female

DRUGS (1)
  1. ARALAST NP [Suspect]
     Route: 042

REACTIONS (5)
  - HYPERSENSITIVITY [None]
  - SWOLLEN TONGUE [None]
  - ERYTHEMA [None]
  - PRURITUS [None]
  - DYSPNOEA [None]
